FAERS Safety Report 7558790-5 (Version None)
Quarter: 2011Q2

REPORT INFORMATION
  Report Type: 
  Country: None (occurrence: None)
  Receive Date: 20110621
  Receipt Date: 20110615
  Transmission Date: 20111010
  Serious: Yes (Hospitalization)
  Sender: FDA-Public Use
  Company Number: HR-BRISTOL-MYERS SQUIBB COMPANY-15163652

PATIENT
  Age: 37 Year
  Sex: Female

DRUGS (6)
  1. SEROQUEL [Concomitant]
  2. OLANZAPINE [Suspect]
     Indication: PSYCHOTIC DISORDER
     Dosage: ALSO 7.5 TO 10MG PER DAY
  3. RISPERDAL [Concomitant]
  4. ABILIFY [Suspect]
     Indication: SCHIZOAFFECTIVE DISORDER
  5. MIRTAZAPINE [Concomitant]
  6. DIAZEPAM [Suspect]
     Indication: PSYCHOTIC DISORDER

REACTIONS (3)
  - PREGNANCY [None]
  - PSYCHOTIC DISORDER [None]
  - NORMAL NEWBORN [None]
